FAERS Safety Report 4921178-7 (Version None)
Quarter: 2006Q1

REPORT INFORMATION
  Report Type: 
  Country: None (occurrence: None)
  Receive Date: 20060217
  Receipt Date: 20060206
  Transmission Date: 20060701
  Serious: Yes (Hospitalization)
  Sender: FDA-Public Use
  Company Number: US016810

PATIENT
  Age: 51 Year
  Sex: Female

DRUGS (18)
  1. FENTANYL CITRATE [Suspect]
  2. ZAPONEX [Suspect]
     Dates: start: 20050526
  3. THYROXINE [Suspect]
  4. VALPROATE SODIUM [Suspect]
  5. RANITIDINE [Suspect]
  6. HYDROCORTISONE [Suspect]
  7. CIPROFLOXACIN [Suspect]
  8. FLUCONAZOLE [Suspect]
  9. ACETAMINOPHEN [Suspect]
  10. AMISULPRIDE [Concomitant]
  11. LITHIUM [Concomitant]
  12. LACTULOSE [Concomitant]
  13. ENOXAPARIN SODIUM [Concomitant]
  14. PROPOFOL [Concomitant]
  15. MIDAZOLAM HCL [Concomitant]
  16. NORADRENALINE [Concomitant]
  17. POTASSIUM [Concomitant]
  18. INSULIN [Concomitant]

REACTIONS (1)
  - LOSS OF CONSCIOUSNESS [None]
